FAERS Safety Report 13430066 (Version 1)
Quarter: 2017Q2

REPORT INFORMATION
  Report Type: Spontaneous
  Country: US (occurrence: US)
  Receive Date: 20170412
  Receipt Date: 20170412
  Transmission Date: 20170830
  Serious: No
  Sender: FDA-Public Use
  Company Number: US-BEH-2017079534

PATIENT
  Age: 40 Year
  Sex: Female

DRUGS (1)
  1. HIZENTRA [Suspect]
     Active Substance: HUMAN IMMUNOGLOBULIN G
     Indication: IMMUNODEFICIENCY
     Dosage: 14 G, QOW
     Route: 058
     Dates: start: 20170407, end: 20170407

REACTIONS (6)
  - Feeling hot [Unknown]
  - Body temperature increased [Unknown]
  - Panic attack [Unknown]
  - Anxiety [Recovering/Resolving]
  - Blood pressure increased [Unknown]
  - Oesophageal pain [Unknown]

NARRATIVE: CASE EVENT DATE: 20170407
